FAERS Safety Report 6193303-4 (Version None)
Quarter: 2009Q2

REPORT INFORMATION
  Report Type: 
  Country: None (occurrence: None)
  Receive Date: 20090514
  Receipt Date: 20090514
  Transmission Date: 20091009
  Serious: Yes (Hospitalization)
  Sender: FDA-Public Use
  Company Number: None

PATIENT
  Age: 67 Year
  Sex: Male

DRUGS (2)
  1. ASPIRIN [Suspect]
     Indication: CORONARY ARTERY BYPASS
     Dosage: 81MG DAILY PO
     Route: 048
  2. PLAVIX [Suspect]
     Dosage: 75MG DAILY PO
     Route: 048

REACTIONS (1)
  - MELAENA [None]
